FAERS Safety Report 4442585-5 (Version None)
Quarter: 2004Q3

REPORT INFORMATION
  Report Type: 
  Country: None (occurrence: None)
  Receive Date: 20040903
  Receipt Date: 20040727
  Transmission Date: 20050211
  Serious: Yes (Other)
  Sender: FDA-Public Use
  Company Number: 2004UW15831

PATIENT
  Age: 74 Year
  Sex: Male
  Weight: 82.5547 kg

DRUGS (2)
  1. CRESTOR [Suspect]
     Indication: BLOOD CHOLESTEROL INCREASED
     Dosage: 10 MG
     Dates: start: 20040506, end: 20040601
  2. AVANDAMET [Concomitant]

REACTIONS (2)
  - ASTHENIA [None]
  - CHROMATURIA [None]
